FAERS Safety Report 12060412 (Version 2)
Quarter: 2016Q2

REPORT INFORMATION
  Report Type: Spontaneous
  Country: US (occurrence: US)
  Receive Date: 20160210
  Receipt Date: 20160420
  Transmission Date: 20160815
  Serious: Yes (Other)
  Sender: FDA-Public Use
  Company Number: US-ELI_LILLY_AND_COMPANY-US201602000220

PATIENT
  Sex: Male

DRUGS (2)
  1. CIALIS [Suspect]
     Active Substance: TADALAFIL
     Indication: ERECTILE DYSFUNCTION
     Dosage: 2.5 MG, PRN
     Route: 048
     Dates: start: 201503, end: 201511
  2. CIALIS [Suspect]
     Active Substance: TADALAFIL
     Indication: PROSTATISM

REACTIONS (6)
  - Hypersensitivity [Not Recovered/Not Resolved]
  - Upper respiratory tract infection [Not Recovered/Not Resolved]
  - Inappropriate schedule of drug administration [Unknown]
  - Tinnitus [Not Recovered/Not Resolved]
  - Neurosensory hypoacusis [Not Recovered/Not Resolved]
  - Wrong technique in product usage process [Unknown]
